FAERS Safety Report 17370360 (Version 1)
Quarter: 2020Q1

REPORT INFORMATION
  Report Type: Spontaneous
  Country: US (occurrence: US)
  Receive Date: 20200204
  Receipt Date: 20200204
  Transmission Date: 20200409
  Serious: No
  Sender: FDA-Public Use
  Company Number: None

PATIENT
  Age: 28 Year
  Sex: Female
  Weight: 79.5 kg

DRUGS (1)
  1. OMNIPEN [Suspect]
     Active Substance: AMPICILLIN
     Dates: start: 20200131, end: 20200131

REACTIONS (7)
  - Erythema [None]
  - Peripheral swelling [None]
  - Vomiting [None]
  - Rash [None]
  - Paraesthesia [None]
  - Lip swelling [None]
  - Paraesthesia oral [None]
